FAERS Safety Report 10425220 (Version 1)
Quarter: 2014Q3

REPORT INFORMATION
  Report Type: Spontaneous
  Country: JP (occurrence: JP)
  Receive Date: 20140902
  Receipt Date: 20140902
  Transmission Date: 20150326
  Serious: Yes (Other)
  Sender: FDA-Public Use
  Company Number: PHHY2012JP135456

PATIENT
  Age: 60 Year

DRUGS (1)
  1. ZOMETA [Suspect]
     Active Substance: ZOLEDRONIC ACID
     Indication: METASTASES TO BONE
     Dosage: 4 MG, PER MONTH
     Dates: start: 20060606

REACTIONS (2)
  - Exposed bone in jaw [Recovered/Resolved]
  - Periodontal disease [Recovered/Resolved]
